FAERS Safety Report 7096076-6 (Version None)
Quarter: 2010Q4

REPORT INFORMATION
  Report Type: 
  Country: None (occurrence: None)
  Receive Date: 20101111
  Receipt Date: 20101101
  Transmission Date: 20110411
  Serious: Yes (Other)
  Sender: FDA-Public Use
  Company Number: US-ROCHE-718711

PATIENT
  Sex: Male
  Weight: 52.2 kg

DRUGS (2)
  1. ACCUTANE [Suspect]
     Indication: ACNE
     Route: 065
     Dates: start: 20020901, end: 20030801
  2. ADVIL [Concomitant]
     Dosage: RECEIVED SPORADICALLY

REACTIONS (7)
  - COLITIS ULCERATIVE [None]
  - DRY SKIN [None]
  - FIBULA FRACTURE [None]
  - FOOT FRACTURE [None]
  - GASTROINTESTINAL INJURY [None]
  - LIP DRY [None]
  - PHOTOSENSITIVITY REACTION [None]
